FAERS Safety Report 23179280 (Version 2)
Quarter: 2023Q4

REPORT INFORMATION
  Report Type: Spontaneous
  Country: US (occurrence: US)
  Receive Date: 20231113
  Receipt Date: 20231220
  Transmission Date: 20240109
  Serious: No
  Sender: FDA-Public Use
  Company Number: US-PFIZER INC-202300351176

PATIENT
  Age: 87 Year
  Sex: Female
  Weight: 45.351 kg

DRUGS (1)
  1. PAXLOVID [Suspect]
     Active Substance: NIRMATRELVIR\RITONAVIR
     Indication: COVID-19 treatment
     Dosage: [NIRMATRELVIR 300 MG]/[RITONAVIR 100 MG]; 2X/DAY
     Dates: start: 20231015, end: 20231019

REACTIONS (4)
  - Erythema [Unknown]
  - Facial pain [Unknown]
  - Pruritus [Unknown]
  - Sunburn [Unknown]

NARRATIVE: CASE EVENT DATE: 20231001
